FAERS Safety Report 24372220 (Version 1)
Quarter: 2024Q3

REPORT INFORMATION
  Report Type: Spontaneous
  Country: US (occurrence: US)
  Receive Date: 20240927
  Receipt Date: 20240927
  Transmission Date: 20241017
  Serious: Yes (Hospitalization)
  Sender: PFIZER
  Company Number: US-PFIZER INC-PV202400123252

PATIENT
  Age: 67 Year
  Sex: Male
  Weight: 80 kg

DRUGS (5)
  1. HEPARIN SODIUM [Interacting]
     Active Substance: HEPARIN SODIUM
     Indication: Aortic aneurysm rupture
     Dosage: 23000 IU
     Route: 042
  2. HEPARIN SODIUM [Interacting]
     Active Substance: HEPARIN SODIUM
     Dosage: 10000 IU
  3. HEPARIN SODIUM [Interacting]
     Active Substance: HEPARIN SODIUM
     Dosage: 15000 IU
  4. ANDEXANET ALFA [Interacting]
     Active Substance: ANDEXANET ALFA
     Indication: Cardiopulmonary bypass
     Dosage: 800 MG, OVER 30 MINUTES + 8 MG/MIN OVER 120 MINUTES
  5. ANTITHROMBIN III HUMAN [Concomitant]
     Active Substance: ANTITHROMBIN III HUMAN
     Indication: Aortic aneurysm rupture
     Dosage: 500 IU

REACTIONS (2)
  - Drug interaction [Unknown]
  - Heparin resistance [Unknown]
